FAERS Safety Report 23767334 (Version 1)
Quarter: 2024Q2

REPORT INFORMATION
  Report Type: Report from Study
  Country: US (occurrence: US)
  Receive Date: 20240422
  Receipt Date: 20240422
  Transmission Date: 20240715
  Serious: Yes (Other)
  Sender: FDA-Public Use
  Company Number: US-ABBVIE-5358008

PATIENT
  Sex: Male
  Weight: 63 kg

DRUGS (2)
  1. HUMIRA [Suspect]
     Active Substance: ADALIMUMAB
     Indication: Crohn^s disease
     Dosage: CITRATE FREE, STRENGTH 40 MILLIGRAMS
     Route: 058
     Dates: start: 20130115
  2. HUMIRA [Suspect]
     Active Substance: ADALIMUMAB
     Dosage: LAST ADMIN DATE  JAN 2013, CITRATE FREE, FORM STRENGTH 40 MILLIGRAMS
     Route: 058
     Dates: start: 20130105

REACTIONS (5)
  - Rectal abscess [Recovered/Resolved]
  - Osteoporosis [Unknown]
  - Rectal abscess [Recovering/Resolving]
  - Bone density abnormal [Unknown]
  - Pain [Unknown]

NARRATIVE: CASE EVENT DATE: 20230101
